FAERS Safety Report 14133095 (Version 1)
Quarter: 2017Q4

REPORT INFORMATION
  Report Type: Report from Study
  Country: US (occurrence: US)
  Receive Date: 20171026
  Receipt Date: 20171026
  Transmission Date: 20180321
  Serious: Yes (Hospitalization)
  Sender: FDA-Public Use
  Company Number: US-ACTELION-A-NJ2017-159930

PATIENT
  Age: 72 Year
  Sex: Male
  Weight: 79.82 kg

DRUGS (4)
  1. UPTRAVI [Suspect]
     Active Substance: SELEXIPAG
     Indication: PULMONARY ARTERIAL HYPERTENSION
     Dosage: 600 MCG, BID
     Route: 048
  2. COUMADIN [Concomitant]
     Active Substance: WARFARIN SODIUM
  3. UPTRAVI [Suspect]
     Active Substance: SELEXIPAG
     Dosage: 1000 MCG, BID
     Route: 048
     Dates: end: 201710
  4. SILDENAFIL CITRATE. [Concomitant]
     Active Substance: SILDENAFIL CITRATE

REACTIONS (10)
  - Fatigue [Unknown]
  - Anaemia [Unknown]
  - Headache [Unknown]
  - Tinnitus [Unknown]
  - Hypotension [Unknown]
  - Diarrhoea [Unknown]
  - Peripheral swelling [Unknown]
  - Therapy non-responder [Unknown]
  - Asthenia [Unknown]
  - Decreased appetite [Unknown]
